FAERS Safety Report 8509976-4 (Version None)
Quarter: 2012Q3

REPORT INFORMATION
  Report Type: 
  Country: None (occurrence: None)
  Receive Date: 20120713
  Receipt Date: 20120703
  Transmission Date: 20120928
  Serious: Yes (Other)
  Sender: FDA-Public Use
  Company Number: JP-UCBSA-061299

PATIENT
  Age: 66 Year
  Sex: Female

DRUGS (6)
  1. ZONISAMIDE [Concomitant]
     Route: 048
  2. KEPPRA [Suspect]
     Route: 048
  3. URSO 250 [Concomitant]
     Route: 048
  4. LEVOTHYROXINE SODIUM [Concomitant]
     Route: 048
  5. LANSOPRAZOLE [Concomitant]
  6. LIVACT [Concomitant]
     Route: 048

REACTIONS (1)
  - ELECTROCARDIOGRAM QT PROLONGED [None]
